FAERS Safety Report 11139578 (Version 1)
Quarter: 2015Q2

REPORT INFORMATION
  Report Type: Spontaneous
  Country: US (occurrence: None)
  Receive Date: 20150522
  Receipt Date: 20150522
  Transmission Date: 20150821
  Serious: Yes (Hospitalization)
  Sender: FDA-Public Use
  Company Number: 2015PL000095

PATIENT
  Age: 62 Year
  Sex: Female

DRUGS (1)
  1. ALLOPURINOL (ALLOPURINOL) TABLET [Suspect]
     Active Substance: ALLOPURINOL
     Indication: GOUT

REACTIONS (6)
  - Blood albumin decreased [None]
  - Drug reaction with eosinophilia and systemic symptoms [None]
  - Normochromic normocytic anaemia [None]
  - International normalised ratio increased [None]
  - Transaminases increased [None]
  - Acute kidney injury [None]
